FAERS Safety Report 21139991 (Version 3)
Quarter: 2022Q3

REPORT INFORMATION
  Report Type: Spontaneous
  Country: AR (occurrence: AR)
  Receive Date: 20220728
  Receipt Date: 20220822
  Transmission Date: 20221027
  Serious: Yes (Hospitalization, Other)
  Sender: FDA-Public Use
  Company Number: AR-PINT-2022-Neratinib-106

PATIENT

DRUGS (6)
  1. NERLYNX [Suspect]
     Active Substance: NERATINIB
     Indication: Invasive ductal breast carcinoma
     Dosage: 120MG DAILY FOR THE FIRST WEEK
     Route: 048
     Dates: start: 20220704
  2. NERLYNX [Suspect]
     Active Substance: NERATINIB
     Dosage: 160MG FOR THE SECOND WEEK
     Route: 048
     Dates: start: 202207
  3. NERLYNX [Suspect]
     Active Substance: NERATINIB
     Dosage: 240MG FROM THE THIRD WEEK ONWARDS
     Route: 048
     Dates: start: 202207
  4. NERLYNX [Suspect]
     Active Substance: NERATINIB
     Dosage: 160 MG, DAILY
     Route: 048
     Dates: start: 20220719, end: 20220802
  5. LOPERAMIDE [Concomitant]
     Active Substance: LOPERAMIDE
     Indication: Product used for unknown indication
     Dosage: 1 DF
  6. CAPECITABINE [Concomitant]
     Active Substance: CAPECITABINE
     Indication: Product used for unknown indication
     Dosage: 1500MG IN THE MORNING AND 1000MG IN THE EVENING
     Dates: end: 202207

REACTIONS (16)
  - Asthenia [Not Recovered/Not Resolved]
  - Feeling abnormal [Unknown]
  - Blindness [Unknown]
  - Dizziness [Unknown]
  - Flatulence [Unknown]
  - Ageusia [Unknown]
  - Off label use [Recovered/Resolved]
  - Decubitus ulcer [Unknown]
  - Wound haemorrhage [Unknown]
  - Contusion [Unknown]
  - Cellulitis [Unknown]
  - Ear infection bacterial [Unknown]
  - Platelet count decreased [Unknown]
  - Anaemia [Unknown]
  - Asthenia [Unknown]
  - Skin reaction [Unknown]
